FAERS Safety Report 20625692 (Version 2)
Quarter: 2022Q2

REPORT INFORMATION
  Report Type: Spontaneous
  Country: US (occurrence: None)
  Receive Date: 20220323
  Receipt Date: 20220620
  Transmission Date: 20220720
  Serious: Yes (Life-Threatening, Hospitalization)
  Sender: FDA-Public Use
  Company Number: US-ROCHE-2980773

PATIENT
  Age: 13 Year
  Sex: Female
  Weight: 34.9 kg

DRUGS (2)
  1. GAVRETO [Suspect]
     Active Substance: PRALSETINIB
     Indication: Medullary thyroid cancer
     Route: 048
     Dates: start: 20210511, end: 20211112
  2. CALCITRIOL [Concomitant]
     Active Substance: CALCITRIOL
     Dosage: 0.25 MCG

REACTIONS (5)
  - Pulmonary haemorrhage [Recovering/Resolving]
  - Pneumonia [Recovering/Resolving]
  - Blood phosphorus increased [Unknown]
  - Blood potassium increased [Unknown]
  - Blood calcium decreased [Unknown]

NARRATIVE: CASE EVENT DATE: 20211112
